FAERS Safety Report 24817435 (Version 2)
Quarter: 2025Q1

REPORT INFORMATION
  Report Type: Report from Study
  Country: CA (occurrence: CA)
  Receive Date: 20250108
  Receipt Date: 20250115
  Transmission Date: 20250408
  Serious: Yes (Hospitalization, Other)
  Sender: TAKEDA
  Company Number: CA-TAKEDA-2019TUS004132

PATIENT
  Sex: Male

DRUGS (18)
  1. VEDOLIZUMAB [Suspect]
     Active Substance: VEDOLIZUMAB
     Indication: Crohn^s disease
  2. VEDOLIZUMAB [Suspect]
     Active Substance: VEDOLIZUMAB
  3. PANTOPRAZOLE SODIUM [Suspect]
     Active Substance: PANTOPRAZOLE SODIUM
     Indication: Product used for unknown indication
     Dosage: 40 MILLIGRAM, QD
  4. METHOTREXATE [Concomitant]
     Active Substance: METHOTREXATE
     Dosage: 2.5 MILLIGRAM, 1/WEEK
  5. VENTOLIN [Concomitant]
     Active Substance: ALBUTEROL SULFATE
  6. WARFARIN [Concomitant]
     Active Substance: WARFARIN
  7. OXYCODONE [Concomitant]
     Active Substance: OXYCODONE
  8. METFORMIN [Concomitant]
     Active Substance: METFORMIN HYDROCHLORIDE
  9. LASIX [Concomitant]
     Active Substance: FUROSEMIDE
  10. BISOPROLOL [Concomitant]
     Active Substance: BISOPROLOL
  11. AMLODIPINE [Concomitant]
     Active Substance: AMLODIPINE BESYLATE
  12. ROSUVASTATIN [Concomitant]
     Active Substance: ROSUVASTATIN
  13. ACETAMINOPHEN [Concomitant]
     Active Substance: ACETAMINOPHEN
  14. GABAPENTIN [Concomitant]
     Active Substance: GABAPENTIN
  15. FOLIC ACID [Concomitant]
     Active Substance: FOLIC ACID
  16. DULOXETINE [Concomitant]
     Active Substance: DULOXETINE
  17. RAMIPRIL [Concomitant]
     Active Substance: RAMIPRIL
  18. METAMUCIL [Concomitant]
     Active Substance: PLANTAGO SEED

REACTIONS (3)
  - Pneumonia [Recovered/Resolved]
  - Chronic obstructive pulmonary disease [Recovered/Resolved]
  - Fatigue [Recovered/Resolved]
